FAERS Safety Report 16628407 (Version 1)
Quarter: 2019Q3

REPORT INFORMATION
  Report Type: Spontaneous
  Country: FI (occurrence: FI)
  Receive Date: 20190724
  Receipt Date: 20190724
  Transmission Date: 20191004
  Serious: Yes (Life-Threatening)
  Sender: FDA-Public Use
  Company Number: FI-B.I. PHARMACEUTICALS,INC./RIDGEFIELD-2019-12-002336

PATIENT
  Age: 65 Year
  Sex: Male

DRUGS (1)
  1. JARDIANCE [Suspect]
     Active Substance: EMPAGLIFLOZIN
     Indication: DIABETES MELLITUS
     Dosage: 10,MG,DAILY
     Route: 048
     Dates: start: 20181015, end: 20190523

REACTIONS (5)
  - Fournier^s gangrene [Recovered/Resolved with Sequelae]
  - Orchidectomy [Recovered/Resolved with Sequelae]
  - Bacterial test positive [Recovered/Resolved with Sequelae]
  - Colectomy [Recovered/Resolved with Sequelae]
  - Impaired healing [Recovered/Resolved with Sequelae]

NARRATIVE: CASE EVENT DATE: 20190520
